FAERS Safety Report 15091528 (Version 1)
Quarter: 2018Q2

REPORT INFORMATION
  Report Type: Spontaneous
  Country: US (occurrence: US)
  Receive Date: 20180608
  Receipt Date: 20180608
  Transmission Date: 20180711
  Serious: No
  Sender: FDA-Public Use
  Company Number: None

PATIENT
  Age: 73 Year
  Sex: Male

DRUGS (2)
  1. LIPITOR [Concomitant]
     Active Substance: ATORVASTATIN CALCIUM
  2. ERLEADA [Suspect]
     Active Substance: APALUTAMIDE

REACTIONS (2)
  - Hot flush [None]
  - Depression [None]

NARRATIVE: CASE EVENT DATE: 20180301
